FAERS Safety Report 5034347-5 (Version None)
Quarter: 2006Q2

REPORT INFORMATION
  Report Type: 
  Country: None (occurrence: None)
  Receive Date: 20060626
  Receipt Date: 20060616
  Transmission Date: 20061013
  Serious: Yes (Hospitalization)
  Sender: FDA-Public Use
  Company Number: FR-ROCHE-452248

PATIENT
  Age: 73 Year
  Sex: Female
  Weight: 71 kg

DRUGS (3)
  1. LOXEN LP 50 [Suspect]
     Indication: HYPERTENSION
     Route: 048
     Dates: start: 20040219
  2. COTAREG [Suspect]
     Indication: HYPERTENSION
     Dosage: STRENGTH: REPORTED AS 160/25.
     Route: 048
     Dates: start: 20020304, end: 20060124
  3. KERLONE [Suspect]
     Indication: HYPERTENSION
     Route: 048
     Dates: start: 20020304

REACTIONS (8)
  - ASTHENIA [None]
  - ATRIAL FIBRILLATION [None]
  - CARDIAC MURMUR [None]
  - HYPONATRAEMIA [None]
  - NAUSEA [None]
  - PALLOR [None]
  - TACHYARRHYTHMIA [None]
  - VOMITING [None]
